FAERS Safety Report 5821947-5 (Version None)
Quarter: 2008Q3

REPORT INFORMATION
  Report Type: 
  Country: None (occurrence: None)
  Receive Date: 20080724
  Receipt Date: 20080717
  Transmission Date: 20090109
  Serious: Yes (Hospitalization)
  Sender: FDA-Public Use
  Company Number: US-GENENTECH-263683

PATIENT
  Age: 53 Year
  Sex: Female
  Weight: 82 kg

DRUGS (12)
  1. BEVACIZUMAB [Suspect]
     Indication: GLIOBLASTOMA MULTIFORME
     Dosage: 10 MG/KG, DAYS 1+15
     Route: 042
     Dates: start: 20071019
  2. IRINOTECAN HCL [Concomitant]
     Indication: GLIOBLASTOMA MULTIFORME
     Dosage: 125 MG/M2, DAYS 1+15
     Route: 042
     Dates: start: 20071019
  3. PROVENTIL [Concomitant]
     Indication: DYSPNOEA
     Dosage: 2 PUFF, PRN
  4. KEPPRA [Concomitant]
     Indication: DRUG USE FOR UNKNOWN INDICATION
     Dosage: 500 MG, UNK
  5. ENALAPRIL MALEATE [Concomitant]
     Indication: DRUG USE FOR UNKNOWN INDICATION
  6. PEPCID [Concomitant]
     Indication: DRUG USE FOR UNKNOWN INDICATION
     Dosage: 20 MG, BID
     Route: 048
  7. DECADRON [Concomitant]
     Indication: DRUG USE FOR UNKNOWN INDICATION
     Dosage: 0.5 MG, BID
     Route: 048
  8. EFFEXOR [Concomitant]
     Indication: DRUG USE FOR UNKNOWN INDICATION
     Dosage: 150 MG, UNK
  9. NYSTATIN [Concomitant]
     Indication: DRUG USE FOR UNKNOWN INDICATION
  10. TRIAMCINOLONE [Concomitant]
     Indication: DRUG USE FOR UNKNOWN INDICATION
     Dosage: 0.1 %, UNK
  11. CEFTRIAXONE [Concomitant]
     Dosage: 300 MG, UNK
     Route: 048
  12. ATIVAN [Concomitant]
     Indication: ANXIETY
     Dosage: 0.5 MG, UNK
     Route: 048

REACTIONS (1)
  - THROMBOSIS [None]
